FAERS Safety Report 8031769-5 (Version None)
Quarter: 2012Q1

REPORT INFORMATION
  Report Type: 
  Country: None (occurrence: None)
  Receive Date: 20120109
  Receipt Date: 20120103
  Transmission Date: 20120608
  Serious: Yes (Other)
  Sender: FDA-Public Use
  Company Number: US-PFIZER INC-2011303236

PATIENT
  Sex: Female

DRUGS (1)
  1. ZOLOFT [Suspect]
     Indication: DEPRESSION
     Dosage: 50 MG

REACTIONS (5)
  - TRANSIENT ISCHAEMIC ATTACK [None]
  - COUGH [None]
  - DYSPHAGIA [None]
  - DRUG INEFFECTIVE [None]
  - INTRACARDIAC THROMBUS [None]
